FAERS Safety Report 20218558 (Version 1)
Quarter: 2021Q4

REPORT INFORMATION
  Report Type: Spontaneous
  Country: US (occurrence: US)
  Receive Date: 20211222
  Receipt Date: 20211222
  Transmission Date: 20220303
  Serious: No
  Sender: FDA-Public Use
  Company Number: US-BioHaven Pharmaceuticals-2021BHV000703

PATIENT
  Age: 70 Year
  Sex: Male
  Weight: 87.622 kg

DRUGS (3)
  1. NURTEC ODT [Suspect]
     Active Substance: RIMEGEPANT SULFATE
     Indication: Migraine
     Dosage: TOOK THE MEDICATION TWICE
     Route: 060
     Dates: start: 20211026
  2. SUMATRIPTAN [Suspect]
     Active Substance: SUMATRIPTAN
     Indication: Migraine without aura
     Dosage: DOSE INCREASED FROM 50 MG TO 100 MG
     Route: 065
  3. HYDROCHLOROTHIAZIDE [Concomitant]
     Active Substance: HYDROCHLOROTHIAZIDE
     Indication: Product used for unknown indication
     Route: 065

REACTIONS (6)
  - Drug ineffective [Unknown]
  - Retching [Unknown]
  - Flushing [Recovered/Resolved]
  - Therapeutic product effect incomplete [Unknown]
  - Therapeutic response delayed [Unknown]
  - Therapeutic product effect incomplete [Unknown]
